FAERS Safety Report 25899374 (Version 2)
Quarter: 2025Q4

REPORT INFORMATION
  Report Type: Spontaneous
  Country: US (occurrence: US)
  Receive Date: 20251009
  Receipt Date: 20251011
  Transmission Date: 20260118
  Serious: Yes (Hospitalization, Other)
  Sender: CELLTRION
  Company Number: US-CELLTRION INC.-2025US036536

PATIENT

DRUGS (6)
  1. BEVACIZUMAB [Suspect]
     Active Substance: BEVACIZUMAB
     Indication: Cervix carcinoma recurrent
     Dosage: BEFORE SURGICAL RESECTION OF THE MASS
  2. BEVACIZUMAB [Suspect]
     Active Substance: BEVACIZUMAB
     Dosage: LAST TREATMENT CYCLE WAS ADMINISTERED ONE MONTH BEFORE HER PRESENTATION TO THE HOSPITAL
  3. CARBOPLATIN [Suspect]
     Active Substance: CARBOPLATIN
     Indication: Cervix carcinoma recurrent
     Dosage: BEFORE SURGICAL RESECTION OF THE MASS
  4. CARBOPLATIN [Suspect]
     Active Substance: CARBOPLATIN
     Dosage: LAST TREATMENT CYCLE WAS ADMINISTERED ONE MONTH BEFORE HER PRESENTATION TO THE HOSPITAL
  5. PACLITAXEL [Suspect]
     Active Substance: PACLITAXEL
     Indication: Cervix carcinoma recurrent
     Dosage: BEFORE SURGICAL RESECTION OF THE MASS
  6. PACLITAXEL [Suspect]
     Active Substance: PACLITAXEL
     Dosage: LAST TREATMENT CYCLE WAS ADMINISTERED ONE MONTH BEFORE HER PRESENTATION TO THE HOSPITAL

REACTIONS (2)
  - Enterocutaneous fistula [Not Recovered/Not Resolved]
  - Female genital tract fistula [Not Recovered/Not Resolved]
